FAERS Safety Report 5343901-2 (Version None)
Quarter: 2007Q2

REPORT INFORMATION
  Report Type: 
  Country: None (occurrence: None)
  Receive Date: 20070531
  Receipt Date: 20070531
  Transmission Date: 20071010
  Serious: Yes (Life-Threatening, Hospitalization, Disabling, Other)
  Sender: FDA-Public Use
  Company Number: None

PATIENT
  Age: 34 Year
  Sex: Male
  Weight: 79.3795 kg

DRUGS (2)
  1. DEXTROAMPHETAMINE-DEXADRINE 20-MG TIME RELEASE PILLSX3 PER DAY BRISTOL [Suspect]
     Indication: ATTENTION DEFICIT/HYPERACTIVITY DISORDER
     Dosage: 60 MILLIGRAMS AM UPON WAKING 1-ONCE PER DAY ORAL
     Route: 048
     Dates: start: 19970506, end: 20000708
  2. METHYLPHENIDATE HCL [Suspect]
     Indication: ATTENTION DEFICIT/HYPERACTIVITY DISORDER
     Dosage: 80 MILLIGRAMS RITLAN 4 TIMES PER DAY ORAL
     Route: 048
     Dates: start: 19970506, end: 20000708

REACTIONS (5)
  - ENDOCRINE DISORDER [None]
  - HALLUCINATION [None]
  - INTELLIGENCE INCREASED [None]
  - LEGAL PROBLEM [None]
  - OVERDOSE [None]
